FAERS Safety Report 15782422 (Version 1)
Quarter: 2019Q1

REPORT INFORMATION
  Report Type: Spontaneous
  Country: JP (occurrence: JP)
  Receive Date: 20190102
  Receipt Date: 20190102
  Transmission Date: 20190417
  Serious: Yes (Other)
  Sender: FDA-Public Use
  Company Number: JP-GILEAD-2018-0381963

PATIENT
  Age: 75 Year
  Sex: Female

DRUGS (8)
  1. HARVONI [Suspect]
     Active Substance: LEDIPASVIR\SOFOSBUVIR
     Indication: HEPATITIS C
     Dosage: UNK
     Route: 048
     Dates: start: 20180930, end: 20181214
  2. DAIKENCHUTO [Concomitant]
     Active Substance: HERBALS
     Dosage: UNK
     Route: 048
  3. ALPRAZOLAM. [Concomitant]
     Active Substance: ALPRAZOLAM
     Dosage: 0.2 UNKNOWN, QHS
     Route: 048
  4. MOSAPRIDE [Concomitant]
     Active Substance: MOSAPRIDE
     Dosage: UNK
     Route: 048
  5. REBAMIPIDE [Concomitant]
     Active Substance: REBAMIPIDE
     Dosage: UNK
     Route: 048
  6. STROCAIN [OXETACAINE] [Concomitant]
     Dosage: UNK
     Route: 048
  7. URSO [Concomitant]
     Active Substance: URSODIOL
     Dosage: 2 DF, BID
     Route: 048
     Dates: start: 20181208, end: 201812
  8. MIYA-BM [Concomitant]
     Active Substance: CLOSTRIDIUM BUTYRICUM SPORES STRAIN M-55
     Dosage: UNK
     Route: 048

REACTIONS (13)
  - Diabetes mellitus [Recovered/Resolved]
  - Therapy cessation [Unknown]
  - Feeling abnormal [Unknown]
  - Unevaluable event [Unknown]
  - Discomfort [Unknown]
  - Cardiac valve disease [Unknown]
  - Liver function test abnormal [Unknown]
  - Fatigue [Unknown]
  - Limb discomfort [Unknown]
  - Back pain [Unknown]
  - Gastrointestinal disorder [Unknown]
  - Constipation [Unknown]
  - Feeding disorder [Unknown]

NARRATIVE: CASE EVENT DATE: 20181214
